FAERS Safety Report 6258821-9 (Version None)
Quarter: 2009Q3

REPORT INFORMATION
  Report Type: 
  Country: None (occurrence: None)
  Receive Date: 20090702
  Receipt Date: 20090623
  Transmission Date: 20100115
  Serious: Yes (Hospitalization)
  Sender: FDA-Public Use
  Company Number: 2008US001186

PATIENT
  Age: 40 Year
  Sex: Male
  Weight: 77.1 kg

DRUGS (2)
  1. PROTOPIC [Suspect]
     Indication: ECZEMA
     Dosage: UID QD, TOPICAL
     Route: 061
     Dates: start: 20051101, end: 20060601
  2. ZYRTEC [Concomitant]

REACTIONS (10)
  - BONE MARROW FAILURE [None]
  - BONE MARROW TRANSPLANT [None]
  - DIASTOLIC DYSFUNCTION [None]
  - HODGKIN'S DISEASE NODULAR SCLEROSIS STAGE IV [None]
  - METASTASES TO SPINE [None]
  - PARAINFLUENZAE VIRUS INFECTION [None]
  - PRURITUS [None]
  - RASH [None]
  - SINUS TACHYCARDIA [None]
  - STEM CELL TRANSPLANT [None]
